FAERS Safety Report 8673274 (Version 2)
Quarter: 2012Q4

REPORT INFORMATION
  Report Type: 
  Country: JP (occurrence: JP)
  Receive Date: 20120719
  Receipt Date: 20120905
  Transmission Date: 20130627
  Serious: Yes (Other)
  Sender: FDA-Public Use
  Company Number: JP-MSD-1207JPN004294

PATIENT

DRUGS (3)
  1. GLACTIV [Suspect]
     Indication: TYPE 2 DIABETES MELLITUS
     Dosage: 50 mg, qd
     Route: 048
     Dates: start: 20110704, end: 20120618
  2. MAIBASTAN [Suspect]
     Indication: DYSLIPIDAEMIA
     Dosage: 5 mg, qd
     Route: 048
     Dates: start: 20111211
  3. MAIBASTAN [Suspect]
     Dosage: 5 mg, qd
     Route: 048
     Dates: start: 20100522, end: 201012

REACTIONS (1)
  - Amylase increased [Recovering/Resolving]
